FAERS Safety Report 21796280 (Version 2)
Quarter: 2023Q1

REPORT INFORMATION
  Report Type: Spontaneous
  Country: DE (occurrence: DE)
  Receive Date: 20221229
  Receipt Date: 20230123
  Transmission Date: 20230417
  Serious: Yes (Disabling, Other)
  Sender: FDA-Public Use
  Company Number: DE-MENARINI-DE-MEN-085650

PATIENT
  Sex: Male

DRUGS (12)
  1. RANEXA [Suspect]
     Active Substance: RANOLAZINE
     Indication: Atrial fibrillation
     Dosage: 750 MG RETARD N3 BID ORIFARM GMBH
     Route: 065
     Dates: start: 202212, end: 202212
  2. RANEXA [Suspect]
     Active Substance: RANOLAZINE
     Dosage: 750 MG RETARD N3 BID BERLIN-CHEMIE
     Route: 065
     Dates: start: 202212
  3. RANEXA [Suspect]
     Active Substance: RANOLAZINE
     Dosage: 750 MG RETARD N3 BID BERLIN-CHEMIE
     Route: 065
     Dates: end: 202212
  4. RANEXA [Suspect]
     Active Substance: RANOLAZINE
     Dosage: 1000 MG, BID
     Route: 065
     Dates: start: 201812
  5. TORSEMIDE [Concomitant]
     Active Substance: TORSEMIDE
     Dosage: 10 MG 2-3X1
  6. ENTRESTO [Concomitant]
     Active Substance: SACUBITRIL\VALSARTAN
     Dosage: 24/26 MG(2 IN 1 DAY)
  7. CARVEDILOL [Concomitant]
     Active Substance: CARVEDILOL
  8. DAPAGLIFLOZIN [Concomitant]
     Active Substance: DAPAGLIFLOZIN
  9. IVABRADINE [Concomitant]
     Active Substance: IVABRADINE
  10. AMIODARONE [Concomitant]
     Active Substance: AMIODARONE
  11. EPLERENONE [Concomitant]
     Active Substance: EPLERENONE
  12. XARELTO [Concomitant]
     Active Substance: RIVAROXABAN

REACTIONS (11)
  - Erectile dysfunction [Not Recovered/Not Resolved]
  - Eczema asteatotic [Recovered/Resolved]
  - Hand dermatitis [Recovered/Resolved]
  - Retching [Not Recovered/Not Resolved]
  - Condition aggravated [Recovered/Resolved]
  - Fatigue [Not Recovered/Not Resolved]
  - Tinnitus [Not Recovered/Not Resolved]
  - Dizziness [Recovered/Resolved]
  - Constipation [Not Recovered/Not Resolved]
  - Vomiting [Not Recovered/Not Resolved]
  - Off label use [Not Recovered/Not Resolved]

NARRATIVE: CASE EVENT DATE: 20221201
